FAERS Safety Report 5799991-6 (Version None)
Quarter: 2008Q3

REPORT INFORMATION
  Report Type: 
  Country: None (occurrence: None)
  Receive Date: 20080702
  Receipt Date: 20080702
  Transmission Date: 20090109
  Serious: Yes (Hospitalization)
  Sender: FDA-Public Use
  Company Number: None

PATIENT
  Age: 80 Year
  Sex: Male

DRUGS (1)
  1. DIGITEK 0.25MG BERTEK/ACTAVIS [Suspect]
     Indication: ARRHYTHMIA
     Dosage: TAKE 1 TABLET DAILY SEVERAL YEARS

REACTIONS (5)
  - DIZZINESS [None]
  - NAUSEA [None]
  - PHARMACEUTICAL PRODUCT COMPLAINT [None]
  - VISUAL IMPAIRMENT [None]
  - VOMITING [None]
